FAERS Safety Report 9043643 (Version 1)
Quarter: 2013Q1

REPORT INFORMATION
  Report Type: Report from Study
  Country: US (occurrence: US)
  Receive Date: 20130129
  Receipt Date: 20130129
  Transmission Date: 20140127
  Serious: No
  Sender: FDA-Public Use
  Company Number: US-ABBOTT-12P-163-0913297-00

PATIENT
  Age: 58 Year
  Sex: Female

DRUGS (35)
  1. HUMIRA 40 MG/0.8 ML PEN [Suspect]
     Indication: CROHN^S DISEASE
     Dosage: LOADING DOSE
     Route: 058
     Dates: start: 20120303
  2. BETHANECHOL [Concomitant]
     Indication: PRODUCT USED FOR UNKNOWN INDICATION
  3. ERYTHROMYCIN [Concomitant]
     Indication: PRODUCT USED FOR UNKNOWN INDICATION
  4. REGLAN [Concomitant]
     Indication: PRODUCT USED FOR UNKNOWN INDICATION
  5. DOMPERIDONE [Concomitant]
     Indication: PRODUCT USED FOR UNKNOWN INDICATION
  6. BENTYL [Concomitant]
     Indication: ABDOMINAL PAIN
  7. OMEPRAZOLE [Concomitant]
     Indication: GASTRITIS
     Dosage: EVERY A.M.
  8. LAMICTAL [Concomitant]
     Indication: PRODUCT USED FOR UNKNOWN INDICATION
     Dosage: EVERY A.M.
  9. RITALIN [Concomitant]
     Indication: PRODUCT USED FOR UNKNOWN INDICATION
     Dosage: 40 MG EVERY A.M. AND 20 MG EVERY NOON
  10. ENSAM PATCH [Concomitant]
     Indication: PRODUCT USED FOR UNKNOWN INDICATION
     Dosage: MAOI
  11. MULTIVITAMIN [Concomitant]
     Indication: PRODUCT USED FOR UNKNOWN INDICATION
     Dosage: DAILY
  12. CALCIUM CITRATE [Concomitant]
     Indication: PRODUCT USED FOR UNKNOWN INDICATION
     Dosage: 350 MG EVERY A.M. AND 220 MG AT BEDTIME
  13. MAGNESIUM GLYCINATE [Concomitant]
     Indication: PRODUCT USED FOR UNKNOWN INDICATION
     Dosage: EVERY A.M.
  14. CALCITRIOL [Concomitant]
     Indication: VITAMIN D
     Dosage: 0.25 MG 3 TIMES WEEKLY ON MON,WED AND FRIDAY
  15. SYNTHROID [Concomitant]
     Indication: PRODUCT USED FOR UNKNOWN INDICATION
     Dosage: 0.025 MG 5 TIMES WEEKLY (SKIPS SUN + THURS)
  16. BACLOFEN [Concomitant]
     Indication: MUSCLE SPASMS
  17. BACLOFEN [Concomitant]
     Indication: MUSCLE SPASMS
  18. REQUIP [Concomitant]
     Indication: MUSCLE SPASMS
  19. REQUIP [Concomitant]
     Indication: MUSCLE SPASMS
  20. AMBIEN CR [Concomitant]
     Indication: INSOMNIA
     Dosage: AT BEDTIME
  21. CLONAZEPAM [Concomitant]
     Indication: ANXIETY
     Dosage: 2 MG, 1 TO 1 1/2 TABS AS REQUIRED
  22. LASIX [Concomitant]
     Indication: PRODUCT USED FOR UNKNOWN INDICATION
     Dosage: 20 MG DAILY
  23. VICODIN [Concomitant]
     Indication: PAIN
     Dosage: 1 TO 2 TABS AS REQUIRED
  24. FLEXERIL [Concomitant]
     Indication: BACK PAIN
     Dosage: 10 TO 20 MG AS REQUIRED
  25. NEURONTIN [Concomitant]
     Indication: BACK PAIN
  26. B12 [Concomitant]
     Indication: PRODUCT USED FOR UNKNOWN INDICATION
     Route: 050
  27. OMEGA 3 [Concomitant]
     Indication: PRODUCT USED FOR UNKNOWN INDICATION
  28. RECLAST [Concomitant]
     Indication: OSTEOPOROSIS
     Dosage: INFUSION ONCE YEARLY
  29. EXCEDRIN ASPIRIN FREE [Concomitant]
     Indication: PRODUCT USED FOR UNKNOWN INDICATION
     Dosage: AS REQUIRED
  30. VITAMIN D [Concomitant]
     Indication: PRODUCT USED FOR UNKNOWN INDICATION
     Dosage: 5000 MG CAPSULE WEEKLY (PIERCED + SQUEEZED UNDER TONGUE)
  31. ZOFRAN [Concomitant]
     Indication: NAUSEA
     Dosage: AS REQUIRED, UNDER TONGUE
  32. COMPAZINE [Concomitant]
     Indication: NAUSEA
  33. IRON [Concomitant]
     Indication: ANAEMIA
     Dosage: 125 MG WEEKLY IV INFUSION
  34. VIT B 12 [Concomitant]
     Indication: PRODUCT USED FOR UNKNOWN INDICATION
  35. POTASSIUM [Concomitant]
     Indication: PRODUCT USED FOR UNKNOWN INDICATION

REACTIONS (2)
  - Injection site pain [Unknown]
  - Injection site pruritus [Unknown]
